FAERS Safety Report 8746157 (Version 2)
Quarter: 2012Q4

REPORT INFORMATION
  Report Type: 
  Country: CA (occurrence: CA)
  Receive Date: 20120827
  Receipt Date: 20120829
  Transmission Date: 20130627
  Serious: Yes (Other)
  Sender: FDA-Public Use
  Company Number: PHHY2012CA071234

PATIENT
  Sex: Male

DRUGS (16)
  1. ACLASTA [Suspect]
     Indication: OSTEOPOROSIS
     Dosage: UNK UKN, UNK
     Route: 042
     Dates: start: 20080923
  2. ACLASTA [Suspect]
     Dosage: UNK UKN, UNK
     Route: 042
     Dates: start: 20090930
  3. ACLASTA [Suspect]
     Dosage: UNK UKN, UNK
     Route: 042
     Dates: start: 20100922
  4. ACLASTA [Suspect]
     Dosage: 5 mg, UNK
     Route: 042
     Dates: start: 20111125
  5. DELATESTRYL [Concomitant]
     Dosage: Qmonth
     Route: 058
  6. ADALAT XL [Concomitant]
  7. CREON [Concomitant]
     Dosage: Tii tab/meal
  8. CRESTOR [Concomitant]
     Dosage: 5 mg, UNK
  9. DOMPERIDONE [Concomitant]
     Dosage: ii (BID), daily
  10. PANTOPRAZOLE SODIUM [Concomitant]
     Dosage: 40 mg, UNK
  11. CLONAZEPAM [Concomitant]
     Dosage: 4 mg, UNK
  12. MIRTAZAPINE [Concomitant]
     Dosage: 20 mg, UNK
  13. VENLAFAXINE [Concomitant]
     Dosage: 150 mg, UNK
  14. ABILIFY [Concomitant]
     Dosage: 5 mg, UNK
  15. CARBAMAZEPINE [Concomitant]
     Dosage: 200 mg, UNK
  16. INSULIN NOS. [Concomitant]

REACTIONS (4)
  - Convulsion [Unknown]
  - Injury [Recovering/Resolving]
  - Upper limb fracture [Recovering/Resolving]
  - Muscle spasms [Recovering/Resolving]
